FAERS Safety Report 6469715-8 (Version None)
Quarter: 2009Q4

REPORT INFORMATION
  Report Type: 
  Country: None (occurrence: None)
  Receive Date: 20091130
  Receipt Date: 20091118
  Transmission Date: 20100525
  Serious: Yes (Other)
  Sender: FDA-Public Use
  Company Number: 2009SP034500

PATIENT
  Age: 23 Year
  Sex: Female
  Weight: 55 kg

DRUGS (3)
  1. IMPLANON [Suspect]
     Indication: DRUG USE FOR UNKNOWN INDICATION
     Dosage: SC
     Route: 058
     Dates: start: 20090401
  2. INNOHEP [Concomitant]
  3. XANAX [Concomitant]

REACTIONS (5)
  - DEEP VEIN THROMBOSIS [None]
  - HYPERCOAGULATION [None]
  - LIGAMENT RUPTURE [None]
  - REFUSAL OF TREATMENT BY PATIENT [None]
  - THROMBOPHLEBITIS [None]
